FAERS Safety Report 6877981-X (Version None)
Quarter: 2010Q3

REPORT INFORMATION
  Report Type: 
  Country: None (occurrence: None)
  Receive Date: 20100727
  Receipt Date: 20100711
  Transmission Date: 20110219
  Serious: No
  Sender: FDA-Public Use
  Company Number: US-B.I. PHARMACEUTICALS,INC./RIDGEFIELD-2010-BP-07911BP

PATIENT
  Age: 85 Year
  Sex: Female

DRUGS (4)
  1. MICARDIS [Suspect]
     Indication: HYPERTENSION
     Dosage: 40 MG
     Route: 048
     Dates: start: 20100501
  2. NITROGLYCERIN [Concomitant]
     Indication: ANGINA PECTORIS
     Route: 060
  3. LASIX [Concomitant]
     Indication: CARDIAC DISORDER
     Route: 060
  4. NORVASC [Concomitant]
     Indication: CARDIAC DISORDER
     Route: 060

REACTIONS (3)
  - JOINT SWELLING [None]
  - OEDEMA PERIPHERAL [None]
  - SKIN ULCER [None]
